FAERS Safety Report 23543582 (Version 1)
Quarter: 2024Q1

REPORT INFORMATION
  Report Type: Spontaneous
  Country: US (occurrence: None)
  Receive Date: 20240216
  Receipt Date: 20240216
  Transmission Date: 20240409
  Serious: Yes (Other)
  Sender: FDA-Public Use
  Company Number: None

PATIENT
  Age: 57 Year
  Sex: Female

DRUGS (15)
  1. AMBRISENTAN [Suspect]
     Active Substance: AMBRISENTAN
     Dosage: FREQUENCY : DAILY;?
     Route: 048
     Dates: start: 20130808
  2. TADALAFIL [Concomitant]
     Active Substance: TADALAFIL
  3. FLUOXETINE [Concomitant]
     Active Substance: FLUOXETINE HYDROCHLORIDE
  4. HUMULIN N [Concomitant]
     Active Substance: INSULIN HUMAN
  5. METFORMIN [Concomitant]
     Active Substance: METFORMIN HYDROCHLORIDE
  6. DIGOXIN [Concomitant]
     Active Substance: DIGOXIN
  7. GLIPIZIDE [Concomitant]
     Active Substance: GLIPIZIDE
  8. POTASSIUM CHLORIDE [Concomitant]
     Active Substance: POTASSIUM CHLORIDE
  9. SPIRONOLACTONE [Concomitant]
     Active Substance: SPIRONOLACTONE
  10. FUROSEMIDE [Concomitant]
     Active Substance: FUROSEMIDE
  11. FAMOTIDINE [Concomitant]
     Active Substance: FAMOTIDINE
  12. ALBUTEROL SULFATE [Concomitant]
     Active Substance: ALBUTEROL SULFATE
  13. FLONASE [Concomitant]
     Active Substance: FLUTICASONE PROPIONATE
  14. ASPIRIN [Concomitant]
     Active Substance: ASPIRIN
  15. OXYGEN [Concomitant]
     Active Substance: OXYGEN

REACTIONS (1)
  - Eustachian tube dysfunction [None]

NARRATIVE: CASE EVENT DATE: 20240118
